FAERS Safety Report 16984416 (Version 2)
Quarter: 2020Q1

REPORT INFORMATION
  Report Type: Spontaneous
  Country: US (occurrence: US)
  Receive Date: 20191101
  Receipt Date: 20200310
  Transmission Date: 20200409
  Serious: No
  Sender: FDA-Public Use
  Company Number: US-FARMAPROD-201908-1321

PATIENT
  Sex: Male

DRUGS (17)
  1. LYRICA [Concomitant]
     Active Substance: PREGABALIN
  2. IRON [Concomitant]
     Active Substance: IRON
  3. ULTRAM [Concomitant]
     Active Substance: TRAMADOL HYDROCHLORIDE
  4. DUREZOL [Concomitant]
     Active Substance: DIFLUPREDNATE
     Indication: INFLAMMATION
  5. DUREZOL [Concomitant]
     Active Substance: DIFLUPREDNATE
     Indication: SWELLING
  6. ATORVASTATIN [Concomitant]
     Active Substance: ATORVASTATIN
  7. VITAMIN E [Concomitant]
     Active Substance: .ALPHA.-TOCOPHEROL
  8. CARAFATE [Concomitant]
     Active Substance: SUCRALFATE
  9. AZOPT [Concomitant]
     Active Substance: BRINZOLAMIDE
  10. NORVASC [Concomitant]
     Active Substance: AMLODIPINE BESYLATE
  11. LUMIGAN [Concomitant]
     Active Substance: BIMATOPROST
     Dosage: AT BEDTIME
  12. AZAP [Concomitant]
     Dosage: IN THE MIDDLE OF THE DAY
  13. OXERVATE [Suspect]
     Active Substance: CENEGERMIN-BKBJ
     Indication: NEUROTROPHIC KERATOPATHY
     Route: 047
     Dates: start: 201908
  14. MULTIVITAMINS [Concomitant]
     Active Substance: VITAMINS
  15. METFORMIN [Concomitant]
     Active Substance: METFORMIN HYDROCHLORIDE
  16. COSOPT PF [Concomitant]
     Active Substance: DORZOLAMIDE HYDROCHLORIDE\TIMOLOL MALEATE
     Dosage: IN THE MORNING AND EVENING
  17. CALCIUM [Concomitant]
     Active Substance: CALCIUM

REACTIONS (6)
  - Product dose omission [Unknown]
  - Product quality issue [Unknown]
  - Eye inflammation [Recovered/Resolved]
  - Dry eye [Unknown]
  - Eye pain [Unknown]
  - Drug ineffective [Unknown]
